FAERS Safety Report 7519768-0 (Version None)
Quarter: 2011Q2

REPORT INFORMATION
  Report Type: 
  Country: None (occurrence: None)
  Receive Date: 20110602
  Receipt Date: 20110518
  Transmission Date: 20111010
  Serious: Yes (Hospitalization)
  Sender: FDA-Public Use
  Company Number: DE-WATSON-2011-07036

PATIENT

DRUGS (4)
  1. MELPHALAN HYDROCHLORIDE [Suspect]
     Indication: MULTIPLE MYELOMA
     Dosage: 28 MG, 1 DAY
     Route: 042
  2. BORTEZOMIB [Suspect]
     Indication: MULTIPLE MYELOMA
     Dosage: 2.5 MG, 1 DAY
     Route: 042
     Dates: start: 20100101
  3. PREDNISOLONE [Suspect]
     Indication: MULTIPLE MYELOMA
     Dosage: 100 MG, 1 DAY
     Route: 048
  4. MORPHINE SULFATE [Suspect]
     Indication: PAIN
     Dosage: 80 MG, 1 DAY
     Route: 048

REACTIONS (1)
  - DIVERTICULITIS [None]
